FAERS Safety Report 17693566 (Version 54)
Quarter: 2025Q2

REPORT INFORMATION
  Report Type: Report from Study
  Country: US (occurrence: US)
  Receive Date: 20200422
  Receipt Date: 20250624
  Transmission Date: 20250717
  Serious: Yes (Other)
  Sender: TAKEDA
  Company Number: US-SHIRE-US202013982

PATIENT
  Age: 8 Year
  Sex: Male

DRUGS (18)
  1. ADVATE [Suspect]
     Active Substance: ANTIHEMOPHILIC FACTOR, HUMAN RECOMBINANT
     Indication: Prophylaxis
  2. ADVATE [Suspect]
     Active Substance: ANTIHEMOPHILIC FACTOR, HUMAN RECOMBINANT
     Indication: Haemorrhage
  3. ADVATE [Suspect]
     Active Substance: ANTIHEMOPHILIC FACTOR, HUMAN RECOMBINANT
  4. ADVATE [Suspect]
     Active Substance: ANTIHEMOPHILIC FACTOR, HUMAN RECOMBINANT
  5. ADVATE [Suspect]
     Active Substance: ANTIHEMOPHILIC FACTOR, HUMAN RECOMBINANT
     Dosage: 1966 INTERNATIONAL UNIT, 3/WEEK
  6. ADVATE [Suspect]
     Active Substance: ANTIHEMOPHILIC FACTOR, HUMAN RECOMBINANT
  7. ADVATE [Suspect]
     Active Substance: ANTIHEMOPHILIC FACTOR, HUMAN RECOMBINANT
     Dosage: 2500 INTERNATIONAL UNIT, 3/WEEK
  8. ADVATE [Suspect]
     Active Substance: ANTIHEMOPHILIC FACTOR, HUMAN RECOMBINANT
     Dosage: 2500 INTERNATIONAL UNIT, QD
  9. ADVATE [Suspect]
     Active Substance: ANTIHEMOPHILIC FACTOR, HUMAN RECOMBINANT
     Dosage: 2000 INTERNATIONAL UNIT, 3/WEEK
  10. ADVATE [Suspect]
     Active Substance: ANTIHEMOPHILIC FACTOR, HUMAN RECOMBINANT
  11. ADVATE [Suspect]
     Active Substance: ANTIHEMOPHILIC FACTOR, HUMAN RECOMBINANT
  12. ADVATE [Suspect]
     Active Substance: ANTIHEMOPHILIC FACTOR, HUMAN RECOMBINANT
  13. ADVATE [Suspect]
     Active Substance: ANTIHEMOPHILIC FACTOR, HUMAN RECOMBINANT
     Dosage: 2000 INTERNATIONAL UNIT, 3/WEEK
  14. ADVATE [Suspect]
     Active Substance: ANTIHEMOPHILIC FACTOR, HUMAN RECOMBINANT
     Dosage: 3000 INTERNATIONAL UNIT, 3/WEEK
  15. ADVATE [Suspect]
     Active Substance: ANTIHEMOPHILIC FACTOR, HUMAN RECOMBINANT
     Dosage: 2000 INTERNATIONAL UNIT, 3/WEEK
  16. ADVATE [Suspect]
     Active Substance: ANTIHEMOPHILIC FACTOR, HUMAN RECOMBINANT
  17. ADVATE [Suspect]
     Active Substance: ANTIHEMOPHILIC FACTOR, HUMAN RECOMBINANT
  18. ADVATE [Suspect]
     Active Substance: ANTIHEMOPHILIC FACTOR, HUMAN RECOMBINANT

REACTIONS (60)
  - Contusion [Recovered/Resolved]
  - Mouth haemorrhage [Unknown]
  - Ecchymosis [Recovered/Resolved]
  - Petechiae [Unknown]
  - Haemorrhage [Unknown]
  - Soft tissue haemorrhage [Recovered/Resolved]
  - Internal haemorrhage [Unknown]
  - Epistaxis [Recovered/Resolved]
  - Blood urine present [Recovering/Resolving]
  - Haemarthrosis [Recovered/Resolved]
  - Nail bed bleeding [Recovered/Resolved]
  - Traumatic haemorrhage [Unknown]
  - Seasonal allergy [Unknown]
  - Middle ear effusion [Unknown]
  - Sinus congestion [Unknown]
  - Aphonia [Unknown]
  - Joint instability [Recovered/Resolved]
  - Joint injury [Unknown]
  - Tooth loss [Recovered/Resolved]
  - Animal bite [Unknown]
  - Soft tissue injury [Unknown]
  - Penis injury [Unknown]
  - Eye injury [Unknown]
  - Peripheral swelling [Recovered/Resolved]
  - Pain in extremity [Recovered/Resolved]
  - Injury [Recovered/Resolved]
  - Gait disturbance [Recovered/Resolved]
  - Suspected COVID-19 [Unknown]
  - Skin laceration [Unknown]
  - Swelling [Recovered/Resolved]
  - Joint range of motion decreased [Unknown]
  - Back pain [Recovering/Resolving]
  - Ligament sprain [Unknown]
  - Skin discolouration [Unknown]
  - Fall [Unknown]
  - Ear pain [Unknown]
  - Sinusitis [Unknown]
  - Abdominal injury [Unknown]
  - Sneezing [Recovered/Resolved]
  - Productive cough [Unknown]
  - Extra dose administered [Unknown]
  - Product use complaint [Unknown]
  - Prescription drug used without a prescription [Unknown]
  - Decreased appetite [Unknown]
  - Musculoskeletal chest pain [Recovered/Resolved]
  - Head injury [Unknown]
  - Ear infection [Unknown]
  - Upper respiratory tract infection [Unknown]
  - Arthralgia [Unknown]
  - Nasal congestion [Unknown]
  - Oropharyngeal pain [Unknown]
  - Cough [Unknown]
  - Limb injury [Recovered/Resolved]
  - Influenza [Unknown]
  - Nausea [Unknown]
  - Pyrexia [Recovered/Resolved]
  - Headache [Unknown]
  - Vomiting [Recovered/Resolved]
  - Diarrhoea [Unknown]
  - Urticaria [Unknown]

NARRATIVE: CASE EVENT DATE: 20200408
